FAERS Safety Report 10170899 (Version 1)
Quarter: 2014Q2

REPORT INFORMATION
  Report Type: Spontaneous
  Country: US (occurrence: None)
  Receive Date: 20140513
  Receipt Date: 20140513
  Transmission Date: 20141212
  Serious: Yes (Life-Threatening)
  Sender: FDA-Public Use
  Company Number: None

PATIENT
  Age: 85 Year
  Sex: Female
  Weight: 49.9 kg

DRUGS (4)
  1. TOVIAZ [Suspect]
     Indication: URINARY RETENTION
     Dosage: STARTED AND ENED IN FEB TOOK 1 TIME
     Route: 048
  2. VESICARE [Concomitant]
  3. VITAMIN D3 [Concomitant]
  4. B COMPLEX [Concomitant]

REACTIONS (2)
  - Swollen tongue [None]
  - Pharyngeal oedema [None]
